FAERS Safety Report 18266310 (Version 1)
Quarter: 2020Q3

REPORT INFORMATION
  Report Type: Spontaneous
  Country: US (occurrence: US)
  Receive Date: 20200915
  Receipt Date: 20200915
  Transmission Date: 20201103
  Serious: Yes (Hospitalization, Other)
  Sender: FDA-Public Use
  Company Number: US-ASTELLAS-2020US027948

PATIENT
  Age: 77 Year
  Sex: Male
  Weight: 136 kg

DRUGS (19)
  1. PADCEV [Suspect]
     Active Substance: ENFORTUMAB VEDOTIN-EJFV
     Indication: BLADDER CANCER
     Dosage: 120 MG, EVERY 3 WEEKS (CYCLE 1 DAYS 1, 8 AND 15)
     Route: 042
     Dates: start: 20200701
  2. METOPROLOL SUCCINATE. [Concomitant]
     Active Substance: METOPROLOL SUCCINATE
     Indication: PRODUCT USED FOR UNKNOWN INDICATION
     Route: 048
  3. OLANZAPINE. [Concomitant]
     Active Substance: OLANZAPINE
     Indication: CHEMOTHERAPY
     Dosage: 2.5 MG, ONCE DAILY AT BED TIME
     Route: 048
  4. CETRIZINE [Concomitant]
     Active Substance: CETIRIZINE HYDROCHLORIDE
     Indication: PRODUCT USED FOR UNKNOWN INDICATION
     Route: 048
  5. ELIQUIS [Concomitant]
     Active Substance: APIXABAN
     Indication: PRODUCT USED FOR UNKNOWN INDICATION
     Route: 048
  6. TRELEGY ELLIPTA [Concomitant]
     Active Substance: FLUTICASONE FUROATE\UMECLIDINIUM BROMIDE\VILANTEROL TRIFENATATE
     Indication: PRODUCT USED FOR UNKNOWN INDICATION
     Dosage: 1 DF (1 INHALATION), AS NEEDED
     Route: 050
  7. PADCEV [Suspect]
     Active Substance: ENFORTUMAB VEDOTIN-EJFV
     Indication: TRANSITIONAL CELL CARCINOMA
     Dosage: 120 MG, EVERY 3 WEEKS (CYCLE 1 DAYS 1, 8 AND 15)
     Route: 042
     Dates: start: 20200708
  8. LACTULOSE. [Concomitant]
     Active Substance: LACTULOSE
     Indication: PRODUCT USED FOR UNKNOWN INDICATION
     Route: 048
  9. LASIX [Concomitant]
     Active Substance: FUROSEMIDE
     Indication: PRODUCT USED FOR UNKNOWN INDICATION
     Route: 048
  10. SYNTHROID [Concomitant]
     Active Substance: LEVOTHYROXINE SODIUM
     Indication: PRODUCT USED FOR UNKNOWN INDICATION
     Dosage: UNK UNK, UNKNOWN FREQ.
     Route: 065
  11. ROSUVASTATIN CALCIUM. [Concomitant]
     Active Substance: ROSUVASTATIN CALCIUM
     Indication: PRODUCT USED FOR UNKNOWN INDICATION
     Route: 048
  12. LISINOPRIL. [Concomitant]
     Active Substance: LISINOPRIL
     Indication: PRODUCT USED FOR UNKNOWN INDICATION
     Route: 048
  13. POTASSIUM CHLORIDE. [Concomitant]
     Active Substance: POTASSIUM CHLORIDE
     Indication: PRODUCT USED FOR UNKNOWN INDICATION
     Route: 048
  14. PROAIR HFA [Concomitant]
     Active Substance: ALBUTEROL SULFATE
     Indication: PRODUCT USED FOR UNKNOWN INDICATION
     Route: 048
  15. ALEVE [Concomitant]
     Active Substance: NAPROXEN SODIUM
     Indication: PRODUCT USED FOR UNKNOWN INDICATION
     Dosage: 220 MG, TWICE DAILY AS NEEDED
     Route: 048
  16. PADCEV [Suspect]
     Active Substance: ENFORTUMAB VEDOTIN-EJFV
     Dosage: 120 MG, EVERY 3 WEEKS (CYCLE 1 DAYS 1, 8 AND 15)
     Route: 042
     Dates: start: 20200715
  17. LEVAQUIN [Concomitant]
     Active Substance: LEVOFLOXACIN
     Indication: PRODUCT USED FOR UNKNOWN INDICATION
     Route: 048
  18. MEDROL [METHYLPREDNISOLONE ACETATE] [Concomitant]
     Active Substance: METHYLPREDNISOLONE ACETATE
     Indication: PRODUCT USED FOR UNKNOWN INDICATION
     Route: 048
  19. ONDANSETRON [Concomitant]
     Active Substance: ONDANSETRON
     Indication: PRODUCT USED FOR UNKNOWN INDICATION
     Dosage: 8 MG, EVERY 8 HOURS EVERY 8 HOURS
     Route: 048

REACTIONS (14)
  - Asthenia [Unknown]
  - Blood urine present [Unknown]
  - Dehydration [Unknown]
  - Febrile neutropenia [Unknown]
  - White blood cell count abnormal [Recovered/Resolved]
  - Rash [Unknown]
  - Oxygen saturation decreased [Recovering/Resolving]
  - Decreased appetite [Recovering/Resolving]
  - Vision blurred [Unknown]
  - Weight decreased [Unknown]
  - Abdominal pain [Unknown]
  - Constipation [Unknown]
  - Hypotension [Recovering/Resolving]
  - Dysphagia [Unknown]

NARRATIVE: CASE EVENT DATE: 20200721
